FAERS Safety Report 22289068 (Version 1)
Quarter: 2023Q2

REPORT INFORMATION
  Report Type: Spontaneous
  Country: CN (occurrence: CN)
  Receive Date: 20230505
  Receipt Date: 20230505
  Transmission Date: 20230722
  Serious: Yes (Life-Threatening, Hospitalization, Other)
  Sender: FDA-Public Use
  Company Number: CN-009507513-2305CHN000981

PATIENT
  Age: 74 Year
  Sex: Male

DRUGS (2)
  1. KEYTRUDA [Suspect]
     Active Substance: PEMBROLIZUMAB
     Indication: Neoplasm
     Dosage: 100 MG, ONCE
     Route: 041
     Dates: start: 20230223, end: 20230223
  2. LEVAMLODIPINE BESYLATE [Concomitant]
     Active Substance: LEVAMLODIPINE BESYLATE
     Indication: Hypertension

REACTIONS (17)
  - Acute left ventricular failure [Recovering/Resolving]
  - Troponin increased [Recovering/Resolving]
  - Blood creatine phosphokinase MB increased [Recovering/Resolving]
  - Brain natriuretic peptide increased [Recovering/Resolving]
  - Myocardial ischaemia [Unknown]
  - Acute coronary syndrome [Unknown]
  - Arteriosclerosis coronary artery [Unknown]
  - Chest pain [Unknown]
  - Palpitations [Unknown]
  - Chest discomfort [Recovering/Resolving]
  - Haemoptysis [Recovered/Resolved]
  - Rales [Recovering/Resolving]
  - Dyspnoea paroxysmal nocturnal [Recovering/Resolving]
  - Cardiac disorder [Unknown]
  - Asthma [Unknown]
  - Dyspnoea [Recovering/Resolving]
  - Product use issue [Unknown]

NARRATIVE: CASE EVENT DATE: 20230101
